FAERS Safety Report 5866300-3 (Version None)
Quarter: 2008Q3

REPORT INFORMATION
  Report Type: 
  Country: None (occurrence: None)
  Receive Date: 20080901
  Receipt Date: 20080822
  Transmission Date: 20090109
  Serious: Yes (Hospitalization, Other)
  Sender: FDA-Public Use
  Company Number: PHHY2008FR19060

PATIENT
  Sex: Male

DRUGS (8)
  1. LESCOL [Suspect]
     Dosage: UNK
     Route: 048
  2. GEMZAR [Suspect]
     Dosage: UNK
     Route: 042
     Dates: start: 20080101, end: 20080411
  3. NEBILOX [Suspect]
     Dosage: UNK
     Route: 048
     Dates: end: 20080506
  4. XYZAL [Suspect]
     Dosage: UNK
     Route: 048
     Dates: end: 20080506
  5. ATARAX [Suspect]
     Indication: HYPERTENSION
     Dosage: UNK
     Route: 048
     Dates: end: 20080506
  6. LASIX [Concomitant]
     Dosage: UNK
     Dates: start: 20080501
  7. RAMIPRIL [Concomitant]
     Dosage: UNK
     Dates: start: 20080501, end: 20080601
  8. AMLOR [Concomitant]
     Dosage: UNK
     Dates: start: 20080501

REACTIONS (15)
  - ACUTE PULMONARY OEDEMA [None]
  - ANAEMIA [None]
  - DYSTROPHIC CALCIFICATION [None]
  - GLOMERULAR VASCULAR DISORDER [None]
  - HAEMATURIA [None]
  - HYPERTENSION [None]
  - NEPHROTIC SYNDROME [None]
  - OEDEMA PERIPHERAL [None]
  - ORCHIDECTOMY [None]
  - PROSTATITIS [None]
  - RENAL FAILURE [None]
  - RESPIRATORY FAILURE [None]
  - SEPSIS [None]
  - TESTICULAR ABSCESS [None]
  - THROMBOSIS IN DEVICE [None]
